FAERS Safety Report 4620228-5 (Version None)
Quarter: 2005Q1

REPORT INFORMATION
  Report Type: 
  Country: None (occurrence: None)
  Receive Date: 20050321
  Receipt Date: 20050321
  Transmission Date: 20050727
  Serious: Yes (Other)
  Sender: FDA-Public Use
  Company Number: None

PATIENT
  Age: 42 Year
  Sex: Female
  Weight: 72.5755 kg

DRUGS (2)
  1. LEVAQUIN [Suspect]
     Indication: EAR INFECTION
     Dosage: 1 TABLET    PER DAY   ORAL
     Route: 048
     Dates: start: 20050314, end: 20050323
  2. LEVAQUIN [Suspect]
     Indication: SINUSITIS
     Dosage: 1 TABLET    PER DAY   ORAL
     Route: 048
     Dates: start: 20050314, end: 20050323

REACTIONS (3)
  - ANOREXIA [None]
  - ANXIETY [None]
  - INSOMNIA [None]
